FAERS Safety Report 5710899-4 (Version None)
Quarter: 2008Q2

REPORT INFORMATION
  Report Type: 
  Country: None (occurrence: None)
  Receive Date: 20080421
  Receipt Date: 20080320
  Transmission Date: 20081010
  Serious: No
  Sender: FDA-Public Use
  Company Number: US-BAYER-200817580NA

PATIENT
  Age: 36 Year
  Sex: Female
  Weight: 66 kg

DRUGS (1)
  1. MIRENA [Suspect]
     Indication: CONTRACEPTION
     Route: 015
     Dates: start: 20060201

REACTIONS (6)
  - ABDOMINAL PAIN LOWER [None]
  - IUCD COMPLICATION [None]
  - METRORRHAGIA [None]
  - POLYMENORRHOEA [None]
  - STOMACH DISCOMFORT [None]
  - VAGINAL HAEMORRHAGE [None]
